FAERS Safety Report 6848195-4 (Version None)
Quarter: 2010Q3

REPORT INFORMATION
  Report Type: 
  Country: None (occurrence: None)
  Receive Date: 20100716
  Receipt Date: 20100708
  Transmission Date: 20110219
  Serious: Yes (Hospitalization)
  Sender: FDA-Public Use
  Company Number: B0664368A

PATIENT
  Sex: Female

DRUGS (10)
  1. ZOPHREN [Suspect]
     Indication: PRODUCT USED FOR UNKNOWN INDICATION
     Dosage: 1AMP CYCLIC
     Route: 042
     Dates: start: 20051018
  2. RANITIDINE HCL [Suspect]
     Indication: PRODUCT USED FOR UNKNOWN INDICATION
     Dosage: 1AMP CYCLIC
     Route: 065
     Dates: start: 20051018
  3. SOLU-MEDROL [Suspect]
     Indication: PRODUCT USED FOR UNKNOWN INDICATION
     Dosage: 120MG CYCLIC
     Route: 065
     Dates: start: 20051018
  4. POLARAMINE [Suspect]
     Indication: PRODUCT USED FOR UNKNOWN INDICATION
     Dosage: 1AMP CYCLIC
     Route: 065
     Dates: start: 20051018
  5. ESTREVA [Concomitant]
     Indication: PRODUCT USED FOR UNKNOWN INDICATION
     Route: 065
  6. ORACILLINE [Concomitant]
     Indication: PRODUCT USED FOR UNKNOWN INDICATION
     Dosage: 1MU PER DAY
     Route: 065
  7. TRANXENE [Concomitant]
     Indication: PRODUCT USED FOR UNKNOWN INDICATION
     Dosage: 20MG UNKNOWN
     Route: 065
     Dates: start: 20051115
  8. PRIMPERAN TAB [Concomitant]
     Indication: PRODUCT USED FOR UNKNOWN INDICATION
     Dosage: 2AMP UNKNOWN
     Route: 065
     Dates: start: 20051115
  9. TAXOL [Concomitant]
     Route: 065
     Dates: start: 20030903
  10. CARBOPLATIN [Concomitant]
     Route: 065
     Dates: start: 20030903

REACTIONS (7)
  - ANAPHYLACTIC SHOCK [None]
  - BACK PAIN [None]
  - ERYTHEMA [None]
  - HYPOTENSION [None]
  - LOSS OF CONSCIOUSNESS [None]
  - SENSE OF OPPRESSION [None]
  - VISION BLURRED [None]
